FAERS Safety Report 11830321 (Version 4)
Quarter: 2016Q3

REPORT INFORMATION
  Report Type: Spontaneous
  Country: US (occurrence: US)
  Receive Date: 20151214
  Receipt Date: 20160830
  Transmission Date: 20161109
  Serious: Yes (Hospitalization, Other)
  Sender: FDA-Public Use
  Company Number: US-JNJFOC-20151107955

PATIENT
  Age: 51 Year
  Sex: Male
  Weight: 88.91 kg

DRUGS (1)
  1. LEVAQUIN [Suspect]
     Active Substance: LEVOFLOXACIN
     Indication: PRODUCT USED FOR UNKNOWN INDICATION
     Route: 048
     Dates: start: 20141230

REACTIONS (2)
  - Neuropathy peripheral [Unknown]
  - Tendon rupture [Unknown]

NARRATIVE: CASE EVENT DATE: 201506
